FAERS Safety Report 6361259-7 (Version None)
Quarter: 2009Q3

REPORT INFORMATION
  Report Type: 
  Country: None (occurrence: None)
  Receive Date: 20090918
  Receipt Date: 20090911
  Transmission Date: 20100115
  Serious: Yes (Hospitalization, Other)
  Sender: FDA-Public Use
  Company Number: US-JNJFOC-20090904338

PATIENT
  Sex: Female
  Weight: 52.16 kg

DRUGS (5)
  1. DURAGESIC-100 [Suspect]
     Indication: PAIN
     Route: 062
     Dates: start: 20020101, end: 20030101
  2. SANDOZ FETANYL TRANSDERMAL SYSTEM [Suspect]
     Indication: PAIN
     Route: 062
  3. GABAPENTIN [Concomitant]
     Indication: PAIN
     Dosage: HALF TABLET OF 600 MG
     Route: 048
  4. ZOLPIDEM [Concomitant]
     Indication: SLEEP DISORDER
     Dosage: AT BEDTIME
     Route: 048
  5. AMITRIPTYLINE [Concomitant]
     Indication: DEPRESSION
     Route: 048

REACTIONS (7)
  - APPLICATION SITE EROSION [None]
  - DEVICE ADHESION ISSUE [None]
  - DRUG INEFFECTIVE [None]
  - FALL [None]
  - NEUROPATHY PERIPHERAL [None]
  - PERONEAL NERVE PALSY [None]
  - WRONG TECHNIQUE IN DRUG USAGE PROCESS [None]
